FAERS Safety Report 20642021 (Version 1)
Quarter: 2022Q1

REPORT INFORMATION
  Report Type: Spontaneous
  Country: GB (occurrence: GB)
  Receive Date: 20220328
  Receipt Date: 20220328
  Transmission Date: 20220423
  Serious: Yes (Other)
  Sender: FDA-Public Use
  Company Number: GB-BoehringerIngelheim-2022-BI-161271

PATIENT
  Age: 58 Year
  Sex: Male

DRUGS (6)
  1. DABIGATRAN ETEXILATE [Suspect]
     Active Substance: DABIGATRAN ETEXILATE
     Indication: Product used for unknown indication
     Route: 065
  2. ROSUVASTATIN [Concomitant]
     Active Substance: ROSUVASTATIN
     Indication: Product used for unknown indication
  3. Covid-19 Vaccine vaxzevria (ChAdOx1 S (recombinant)) [Concomitant]
     Indication: Product used for unknown indication
     Dosage: 1 DOSE
     Route: 030
     Dates: start: 20210603, end: 20210603
  4. Covid-19 Vaccine vaxzevria (ChAdOx1 S (recombinant)) [Concomitant]
     Dosage: 1 DOSE
     Route: 030
     Dates: start: 20210318, end: 20210318
  5. ALBUTEROL [Concomitant]
     Active Substance: ALBUTEROL
     Indication: Product used for unknown indication
     Dosage: INHALE 2 DOSES AS NEEDED, 1X 200 DOSE
     Route: 055
  6. SERETIDE [Concomitant]
     Active Substance: FLUTICASONE PROPIONATE\SALMETEROL XINAFOATE
     Indication: Product used for unknown indication
     Dosage: INHALE 2 DOSES
     Route: 055

REACTIONS (8)
  - Pathological fracture [Unknown]
  - Cerebrovascular accident [Unknown]
  - Transient ischaemic attack [Unknown]
  - Paraesthesia [Unknown]
  - Eczema [Unknown]
  - Abdominal pain [Unknown]
  - Raynaud^s phenomenon [Unknown]
  - Mixed anxiety and depressive disorder [Unknown]

NARRATIVE: CASE EVENT DATE: 20050321
